FAERS Safety Report 12306229 (Version 2)
Quarter: 2016Q3

REPORT INFORMATION
  Report Type: Spontaneous
  Country: US (occurrence: US)
  Receive Date: 20160426
  Receipt Date: 20160804
  Transmission Date: 20161109
  Serious: No
  Sender: FDA-Public Use
  Company Number: US-LEO PHARMA-241311

PATIENT
  Sex: Female

DRUGS (1)
  1. PICATO [Suspect]
     Active Substance: INGENOL MEBUTATE
     Indication: ACTINIC CHEILITIS
     Route: 061

REACTIONS (4)
  - Incorrect dose administered [Recovered/Resolved]
  - Incorrect drug administration duration [Unknown]
  - Product use issue [Unknown]
  - Application site oedema [Recovered/Resolved]
